FAERS Safety Report 15822892 (Version 1)
Quarter: 2018Q4

REPORT INFORMATION
  Report Type: Spontaneous
  Country: US (occurrence: US)
  Receive Date: 20181217
  Receipt Date: 20181217
  Transmission Date: 20190205
  Serious: Yes (Life-Threatening, Hospitalization)
  Sender: FDA-Public Use
  Company Number: None

PATIENT
  Age: 1 Day
  Sex: Male

DRUGS (1)
  1. 10% DEXTROSE INJECTION USP 500ML [Suspect]
     Active Substance: DEXTROSE
     Indication: FLUID REPLACEMENT
     Dosage: 8.8 ML PER HOUR PERIPHERAL IV
     Route: 042
     Dates: start: 20181204

REACTIONS (3)
  - Hyperglycaemia [None]
  - Agitation neonatal [None]
  - Device malfunction [None]

NARRATIVE: CASE EVENT DATE: 20181204
